FAERS Safety Report 7345190-6 (Version None)
Quarter: 2011Q1

REPORT INFORMATION
  Report Type: 
  Country: None (occurrence: None)
  Receive Date: 20110310
  Receipt Date: 20110307
  Transmission Date: 20110831
  Serious: Yes (Death)
  Sender: FDA-Public Use
  Company Number: ES-ABBOTT-11P-144-0709856-00

PATIENT
  Age: 75 Year
  Sex: Male

DRUGS (7)
  1. FUROSEMIDE [Concomitant]
     Indication: PRODUCT USED FOR UNKNOWN INDICATION
  2. DIGOXIN [Concomitant]
     Indication: PRODUCT USED FOR UNKNOWN INDICATION
  3. KEPPRA [Concomitant]
     Indication: EPILEPSY
     Dates: start: 20030101
  4. ACENOCOUMAROL [Concomitant]
     Indication: PRODUCT USED FOR UNKNOWN INDICATION
  5. DEPAKENE [Suspect]
     Indication: EPILEPSY
     Route: 048
     Dates: start: 19960101, end: 20000101
  6. DEPAKENE [Suspect]
     Route: 048
     Dates: start: 20000101, end: 20100301
  7. ATENOLOL [Concomitant]
     Indication: PRODUCT USED FOR UNKNOWN INDICATION

REACTIONS (3)
  - HEPATIC FAILURE [None]
  - SOMNOLENCE [None]
  - ENCEPHALOPATHY [None]
